FAERS Safety Report 8582230-0 (Version None)
Quarter: 2012Q3

REPORT INFORMATION
  Report Type: 
  Country: None (occurrence: None)
  Receive Date: 20120727
  Receipt Date: 20120712
  Transmission Date: 20120928
  Serious: Yes (Other)
  Sender: FDA-Public Use
  Company Number: US-1193265

PATIENT
  Age: 54 Year
  Sex: Female

DRUGS (5)
  1. PREDNISOLONE ACETATE [Suspect]
     Indication: IRIDOCYCLITIS
     Dosage: 1 % QID, AT BASELINE OPHTHALMIC). (1 % QID, AT 4 WEEKS OPHTHALMIC), (1 % TID, AT 16 WEEKS OPHTHALMIC
  2. ALPHAGAN [Concomitant]
  3. SIROLIMUS [Concomitant]
  4. COSOPT [Concomitant]
  5. OFLOXACIN [Concomitant]

REACTIONS (2)
  - INTRAOCULAR PRESSURE INCREASED [None]
  - DRUG INEFFECTIVE [None]
